FAERS Safety Report 8117243-6 (Version None)
Quarter: 2012Q1

REPORT INFORMATION
  Report Type: 
  Country: None (occurrence: None)
  Receive Date: 20120206
  Receipt Date: 20120203
  Transmission Date: 20120608
  Serious: No
  Sender: FDA-Public Use
  Company Number: US-PFIZER INC-2012030904

PATIENT
  Sex: Female
  Weight: 91 kg

DRUGS (4)
  1. LYRICA [Suspect]
     Indication: FIBROMYALGIA
     Dosage: UNK
     Dates: start: 20110101
  2. INSULIN [Concomitant]
     Indication: DIABETES MELLITUS
     Dosage: UNK
  3. LYRICA [Suspect]
     Dosage: 50 MG, 2X/DAY
     Dates: start: 20120203
  4. METFORMIN [Concomitant]
     Indication: DIABETES MELLITUS
     Dosage: 500 MG, 2X/DAY

REACTIONS (7)
  - BALANCE DISORDER [None]
  - NAUSEA [None]
  - SOMNOLENCE [None]
  - HEAD DISCOMFORT [None]
  - FATIGUE [None]
  - DIZZINESS [None]
  - BLOOD GLUCOSE INCREASED [None]
